FAERS Safety Report 7137577-1 (Version None)
Quarter: 2010Q4

REPORT INFORMATION
  Report Type: 
  Country: None (occurrence: None)
  Receive Date: 20101119
  Receipt Date: 20100930
  Transmission Date: 20110411
  Serious: Yes (Disabling)
  Sender: FDA-Public Use
  Company Number: FI-GDP-10409088

PATIENT
  Sex: Female

DRUGS (3)
  1. BASIRON AC WASH (BENZOYL PEROXIDE) 5 % [Suspect]
     Indication: ACNE
     Dosage: TOPICAL
     Route: 061
     Dates: start: 20100903, end: 20100903
  2. HARMONET [Concomitant]
  3. THYROXIN [Concomitant]

REACTIONS (3)
  - BURNING SENSATION [None]
  - ERYTHEMA [None]
  - SKIN OEDEMA [None]
